FAERS Safety Report 8334873-7 (Version None)
Quarter: 2012Q2

REPORT INFORMATION
  Report Type: 
  Country: None (occurrence: None)
  Receive Date: 20120503
  Receipt Date: 20120426
  Transmission Date: 20120825
  Serious: Yes (Hospitalization)
  Sender: FDA-Public Use
  Company Number: DK-B.I. PHARMACEUTICALS,INC./RIDGEFIELD-2012-SW-00344DB

PATIENT
  Sex: Female
  Weight: 70 kg

DRUGS (18)
  1. SPIRIVA [Suspect]
     Dosage: PHARMACEUTICAL FORM: 111
  2. PREDNISOLONE [Suspect]
  3. BRICANYL [Suspect]
     Dosage: PHARMACEUTICAL FORM: 110
  4. SERTRALIN ^ACTAVIS^ [Suspect]
     Dosage: PHARMACEUTICAL FORM: 82
  5. SIMVASTATIN [Suspect]
  6. BERODUAL [Suspect]
     Dosage: PHARMACEUTICAL FORM: 206
  7. FUROSEMIDE [Suspect]
     Dosage: PHARMACEUTICAL FORM: 245
  8. ACETAMINOPHEN [Suspect]
     Dosage: PHARMACEUTICAL FORM: 59
  9. POTASSIUM CHLORIDE [Suspect]
  10. PRADAXA [Suspect]
     Indication: ATRIAL FIBRILLATION
     Dosage: PHARMACEUTICAL FORM: 6, DOSAGE TEXT: DOSIS 150MG X 2, STRENGTH: STYRKE: 150 MG
     Route: 048
     Dates: start: 20111205, end: 20120424
  11. DUOVENT [Suspect]
     Dosage: PHARMACEUTICAL FORM: 154
  12. ZOLPIDEM TARTRATE [Suspect]
     Dosage: PHARMACEUTICAL FORM: 82
  13. ISOPTIN SR [Suspect]
     Dosage: PHARMACEUTICAL FORM: 212
  14. DIGOXIN [Suspect]
  15. LOSARTAN ^BLUEFISH^ [Suspect]
     Dosage: PHARMACEUTICAL FORM: 82
  16. OXAZEPAM [Suspect]
     Dosage: PHARMACEUTICAL FORM: 245
  17. MORPHINE SULFATE [Suspect]
     Dosage: PHARMACEUTICAL FORM: 212
  18. FLUTICASONE PROPIONATE/SALMETEROL [Suspect]
     Dosage: PHARMACEUTICAL FORM: 112

REACTIONS (3)
  - IRON DEFICIENCY ANAEMIA [None]
  - GASTRIC ULCER [None]
  - ABDOMINAL PAIN UPPER [None]
